FAERS Safety Report 22324527 (Version 1)
Quarter: 2023Q2

REPORT INFORMATION
  Report Type: Spontaneous
  Country: US (occurrence: None)
  Receive Date: 20230513
  Receipt Date: 20230513
  Transmission Date: 20230722
  Serious: Yes (Other)
  Sender: FDA-Public Use
  Company Number: None

PATIENT
  Age: 3 Year
  Sex: 0
  Weight: 15.75 kg

DRUGS (1)
  1. OFLOXACIN OPHTHALMIC [Suspect]
     Active Substance: OFLOXACIN

REACTIONS (4)
  - Eye swelling [None]
  - Crying [None]
  - Eye irritation [None]
  - Product use issue [None]

NARRATIVE: CASE EVENT DATE: 20230324
